FAERS Safety Report 20454804 (Version 1)
Quarter: 2022Q1

REPORT INFORMATION
  Report Type: Spontaneous
  Country: DE (occurrence: DE)
  Receive Date: 20220210
  Receipt Date: 20220210
  Transmission Date: 20220423
  Serious: Yes (Other)
  Sender: FDA-Public Use
  Company Number: DE-002147023-NVSC2022DE016075

PATIENT
  Sex: Female
  Weight: 58 kg

DRUGS (2)
  1. VENLAFAXINE HCL [Suspect]
     Active Substance: VENLAFAXINE HYDROCHLORIDE
     Dosage: UNK
     Route: 065
     Dates: start: 201808
  2. MIRENA [Concomitant]
     Active Substance: LEVONORGESTREL
     Dosage: UNK, INTRAUTERINE DEVICE
     Route: 065
     Dates: start: 202102

REACTIONS (2)
  - Pain in extremity [Unknown]
  - Deep vein thrombosis [Unknown]

NARRATIVE: CASE EVENT DATE: 20210531
